FAERS Safety Report 8607007 (Version 2)
Quarter: 2013Q2

REPORT INFORMATION
  Report Type: Spontaneous
  Country: US (occurrence: US)
  Receive Date: 20120611
  Receipt Date: 20130621
  Transmission Date: 20140414
  Serious: No
  Sender: FDA-Public Use
  Company Number: US-ASTRAZENECA-2012SE35839

PATIENT
  Age: 22806 Day
  Sex: Female
  Weight: 77.1 kg

DRUGS (12)
  1. NEXIUM [Suspect]
     Indication: GASTROOESOPHAGEAL REFLUX DISEASE
     Dosage: 1 A DAY
     Route: 048
     Dates: start: 20060213, end: 20110217
  2. NEXIUM [Suspect]
     Indication: GASTROOESOPHAGEAL REFLUX DISEASE
     Route: 048
     Dates: start: 20060213
  3. HEDROCORTISONS [Concomitant]
  4. ADVAIR [Concomitant]
  5. COMBIVENT [Concomitant]
  6. PREDNISONE [Concomitant]
     Dates: start: 20051220
  7. HYDROCORT [Concomitant]
     Dates: start: 20060110
  8. PREVPAC [Concomitant]
     Dates: start: 20060125
  9. LOTREL [Concomitant]
     Dosage: 5-20 MG
     Dates: start: 20060228
  10. METFORMIN [Concomitant]
     Dates: start: 20060228
  11. ACTOS [Concomitant]
     Dates: start: 20060310
  12. CYCLOBENZAPR [Concomitant]
     Dates: start: 20060310

REACTIONS (7)
  - Osteoporosis [Unknown]
  - Multiple fractures [Unknown]
  - Spinal fracture [Unknown]
  - Arthritis [Unknown]
  - Chronic obstructive pulmonary disease [Unknown]
  - Back pain [Unknown]
  - Osteopenia [Unknown]
